FAERS Safety Report 25003544 (Version 1)
Quarter: 2025Q1

REPORT INFORMATION
  Report Type: Spontaneous
  Country: US (occurrence: US)
  Receive Date: 20250224
  Receipt Date: 20250224
  Transmission Date: 20250409
  Serious: No
  Sender: AUROBINDO
  Company Number: US-AUROBINDO-AUR-APL-2024-040924

PATIENT
  Age: 8 Year
  Sex: Male
  Weight: 25.2 kg

DRUGS (1)
  1. LEVETIRACETAM [Suspect]
     Active Substance: LEVETIRACETAM
     Indication: Seizure
     Route: 065
     Dates: start: 20240419

REACTIONS (4)
  - Dermatitis allergic [Unknown]
  - Urticaria [Unknown]
  - Product taste abnormal [Unknown]
  - Product quality issue [Unknown]
